FAERS Safety Report 13001535 (Version 1)
Quarter: 2016Q4

REPORT INFORMATION
  Report Type: Spontaneous
  Country: US (occurrence: US)
  Receive Date: 20161205
  Receipt Date: 20161205
  Transmission Date: 20170207
  Serious: Yes (Other)
  Sender: FDA-Public Use
  Company Number: None

PATIENT
  Age: 55 Year
  Sex: Female
  Weight: 94.5 kg

DRUGS (40)
  1. GABAPENTIN. [Concomitant]
     Active Substance: GABAPENTIN
  2. DILAUDID [Concomitant]
     Active Substance: HYDROMORPHONE HYDROCHLORIDE
  3. PLAQUENIL [Concomitant]
     Active Substance: HYDROXYCHLOROQUINE SULFATE
  4. LAMICTAL [Concomitant]
     Active Substance: LAMOTRIGINE
  5. MYCOLOG [Concomitant]
     Active Substance: GRAMICIDIN\NEOMYCIN SULFATE\NYSTATIN\TRIAMCINOLONE ACETONIDE
  6. IRON [Concomitant]
     Active Substance: IRON
  7. FISH OIL [Concomitant]
     Active Substance: FISH OIL
  8. LEVOTHYROXINE. [Concomitant]
     Active Substance: LEVOTHYROXINE
  9. CYMBALTA [Concomitant]
     Active Substance: DULOXETINE HYDROCHLORIDE
  10. ISOSORBIDE MONONITRATE. [Concomitant]
     Active Substance: ISOSORBIDE MONONITRATE
  11. PILOCARPINE. [Concomitant]
     Active Substance: PILOCARPINE
  12. CITRACAL [Concomitant]
     Active Substance: CALCIUM CITRATE
  13. ALLEGRA [Concomitant]
     Active Substance: FEXOFENADINE HYDROCHLORIDE
  14. ADVIL [Concomitant]
     Active Substance: IBUPROFEN
  15. GAVISCON [Concomitant]
     Active Substance: ALUMINUM HYDROXIDE\MAGNESIUM CARBONATE
  16. EXALGO [Concomitant]
     Active Substance: HYDROMORPHONE HYDROCHLORIDE
  17. NYSTATIN CREAM [Concomitant]
     Active Substance: NYSTATIN
  18. ONDANSETRON [Concomitant]
     Active Substance: ONDANSETRON
  19. BIOTIN [Concomitant]
     Active Substance: BIOTIN
  20. ALBUTEROL. [Concomitant]
     Active Substance: ALBUTEROL
  21. FLUOROMETHOLONE. [Concomitant]
     Active Substance: FLUOROMETHOLONE
  22. MIRALAX [Concomitant]
     Active Substance: POLYETHYLENE GLYCOL 3350
  23. NEXIUM [Concomitant]
     Active Substance: ESOMEPRAZOLE MAGNESIUM
  24. HYDROCORTISONE CREAM [Concomitant]
     Active Substance: HYDROCORTISONE
  25. LYRICA [Concomitant]
     Active Substance: PREGABALIN
  26. NARCAN [Concomitant]
     Active Substance: NALOXONE HYDROCHLORIDE
  27. KLOR-CON [Concomitant]
     Active Substance: POTASSIUM CHLORIDE
  28. VITAMIN D3 [Concomitant]
     Active Substance: CHOLECALCIFEROL
  29. MOVANTIK [Suspect]
     Active Substance: NALOXEGOL OXALATE
     Indication: CONSTIPATION
     Dosage: ?          QUANTITY:1 TABLET(S);?
     Route: 048
     Dates: start: 20161003, end: 20161205
  30. CARAFATE [Concomitant]
     Active Substance: SUCRALFATE
  31. NITROGLYCERIN. [Concomitant]
     Active Substance: NITROGLYCERIN
  32. PEPCID [Concomitant]
     Active Substance: FAMOTIDINE
  33. FLONASE [Concomitant]
     Active Substance: FLUTICASONE PROPIONATE
  34. MAGNESIUM [Concomitant]
     Active Substance: MAGNESIUM
  35. CARVEDILOL. [Concomitant]
     Active Substance: CARVEDILOL
  36. ARICEPT [Concomitant]
     Active Substance: DONEPEZIL HYDROCHLORIDE
  37. SAVELLA [Concomitant]
     Active Substance: MILNACIPRAN HYDROCHLORIDE
  38. NYSTATIN POWDER 10000 U/GM [Concomitant]
     Active Substance: NYSTATIN
  39. VITAMIN B12 [Concomitant]
     Active Substance: CYANOCOBALAMIN
  40. MULTIVITAMIN [Concomitant]
     Active Substance: VITAMINS

REACTIONS (4)
  - Vomiting [None]
  - Ear pain [None]
  - Gastrooesophageal reflux disease [None]
  - Abdominal discomfort [None]

NARRATIVE: CASE EVENT DATE: 20161003
